FAERS Safety Report 8283500-6 (Version None)
Quarter: 2012Q2

REPORT INFORMATION
  Report Type: 
  Country: None (occurrence: None)
  Receive Date: 20120413
  Receipt Date: 20120412
  Transmission Date: 20120825
  Serious: Yes (Hospitalization)
  Sender: FDA-Public Use
  Company Number: PHHY2012IT030785

PATIENT
  Sex: Male

DRUGS (5)
  1. OXALIPLATIN [Suspect]
     Indication: COLON CANCER
     Dosage: 230 MG
     Route: 042
     Dates: start: 20120124, end: 20120327
  2. XELODA [Suspect]
     Indication: COLON CANCER
     Dosage: 150 MG, QID
     Route: 048
     Dates: start: 20120124, end: 20120404
  3. KEPPRA [Concomitant]
     Dosage: 2 DF
     Route: 048
  4. FRAGMIN [Concomitant]
     Route: 058
  5. XELODA [Suspect]
     Dosage: 500 MG, 6QD
     Route: 048
     Dates: start: 20120124, end: 20120404

REACTIONS (1)
  - CARDIAC ARREST [None]
